FAERS Safety Report 4479568-5 (Version None)
Quarter: 2004Q4

REPORT INFORMATION
  Report Type: 
  Country: None (occurrence: None)
  Receive Date: 20041015
  Receipt Date: 20041006
  Transmission Date: 20050328
  Serious: Yes (Death, Hospitalization)
  Sender: FDA-Public Use
  Company Number: A-US2004-05011

PATIENT
  Age: 88 Year
  Sex: Male

DRUGS (10)
  1. TRACLEER [Suspect]
     Indication: PULMONARY HYPERTENSION
     Dosage: 125 MG, BID, ORAL
     Route: 048
     Dates: start: 20040301, end: 20040728
  2. TRACLEER [Suspect]
     Dosage: 62.5 MG, BID, ORAL
     Route: 048
     Dates: start: 20030910, end: 20040229
  3. LEVOCET [Concomitant]
  4. METOPROLOL [Concomitant]
  5. LANOXIN [Concomitant]
  6. LASIX [Concomitant]
  7. ZAROXOLYN [Concomitant]
  8. WARFARIN [Concomitant]
  9. ALPRAZOLAM [Concomitant]
  10. KLOR-CON [Concomitant]

REACTIONS (5)
  - ABDOMINAL PAIN [None]
  - CARDIAC FAILURE CONGESTIVE [None]
  - DISEASE PROGRESSION [None]
  - PULMONARY HYPERTENSION [None]
  - URTICARIA [None]
